FAERS Safety Report 9856938 (Version 2)
Quarter: 2014Q2

REPORT INFORMATION
  Report Type: Spontaneous
  Country: DE (occurrence: DE)
  Receive Date: 20140130
  Receipt Date: 20140421
  Transmission Date: 20141212
  Serious: Yes (Hospitalization)
  Sender: FDA-Public Use
  Company Number: DE-PFIZER INC-2014024141

PATIENT
  Age: 86 Year
  Sex: Male

DRUGS (8)
  1. PANTOZOL [Suspect]
     Indication: PROPHYLAXIS
     Dosage: 40 MG, 2X/DAY
     Route: 048
     Dates: start: 201303
  2. PRADAXA [Interacting]
     Indication: CEREBROVASCULAR ACCIDENT
     Dosage: 150 MG, 2X/DAY
     Route: 048
     Dates: start: 20130320
  3. PRADAXA [Interacting]
     Indication: ATRIAL FIBRILLATION
  4. BISOPROLOL [Concomitant]
     Dosage: 5 MG, UNK
  5. SIMVASTATIN [Concomitant]
     Dosage: 40 MG, UNK
  6. GALENIC /CANDESARTAN/HYDROCHLOROTHIAZIDE/ [Concomitant]
     Dosage: 32/25 MG
  7. TAVOR EXPIDET [Concomitant]
  8. CARMEN [Concomitant]

REACTIONS (3)
  - Drug interaction [Unknown]
  - Drug level decreased [Unknown]
  - Ischaemia [Unknown]
